FAERS Safety Report 16711357 (Version 4)
Quarter: 2023Q4

REPORT INFORMATION
  Report Type: Report from Study
  Country: US (occurrence: US)
  Receive Date: 20190816
  Receipt Date: 20231030
  Transmission Date: 20240110
  Serious: Yes (Other)
  Sender: FDA-Public Use
  Company Number: US-JAZZ-2019-US-011334

PATIENT
  Age: 43 Year
  Sex: Male

DRUGS (44)
  1. XYREM [Suspect]
     Active Substance: SODIUM OXYBATE
     Indication: Narcolepsy
     Dosage: 2.25 G, BID
     Route: 048
     Dates: start: 200803, end: 200806
  2. XYREM [Suspect]
     Active Substance: SODIUM OXYBATE
     Indication: Cataplexy
     Dosage: 3.75 G, BID
     Route: 048
     Dates: start: 200806, end: 201003
  3. XYREM [Suspect]
     Active Substance: SODIUM OXYBATE
     Indication: Somnolence
     Dosage: 4.5 G, BID
     Route: 048
     Dates: start: 201003
  4. LINZESS [Concomitant]
     Active Substance: LINACLOTIDE
     Indication: Product used for unknown indication
     Dosage: UNK UNK, QD
     Dates: start: 20170814
  5. TRINTELLIX [Concomitant]
     Active Substance: VORTIOXETINE HYDROBROMIDE
     Indication: Product used for unknown indication
     Dosage: UNK
     Dates: start: 201705
  6. AZITHROMYCIN [Concomitant]
     Active Substance: AZITHROMYCIN
     Indication: Product used for unknown indication
     Dosage: UNK
     Dates: start: 20151130, end: 20160104
  7. BUDESONIDE [Concomitant]
     Active Substance: BUDESONIDE
     Indication: Product used for unknown indication
     Dosage: UNK
     Dates: start: 20151130, end: 201601
  8. VITAMIN D3 [Concomitant]
     Active Substance: CHOLECALCIFEROL
     Indication: Product used for unknown indication
     Dosage: UNK
     Dates: start: 20151120, end: 201903
  9. NUVIGIL [Concomitant]
     Active Substance: ARMODAFINIL
     Indication: Product used for unknown indication
     Dosage: UNK
     Dates: start: 20151019, end: 201903
  10. VITAMIN B12 [Concomitant]
     Active Substance: CYANOCOBALAMIN
     Indication: Product used for unknown indication
     Dosage: UNK
     Dates: start: 20150702, end: 201601
  11. LEVOTHYROXINE [Concomitant]
     Active Substance: LEVOTHYROXINE
     Indication: Product used for unknown indication
     Dosage: UNK
     Dates: start: 20150614
  12. BUSPIRONE HCL [Concomitant]
     Active Substance: BUSPIRONE HYDROCHLORIDE
     Indication: Product used for unknown indication
     Dosage: UNK
     Dates: start: 20150506
  13. WELLBUTRIN [Concomitant]
     Active Substance: BUPROPION HYDROCHLORIDE
     Indication: Product used for unknown indication
     Dosage: UNK
     Dates: start: 20150506, end: 201903
  14. CEPHALEXIN [Concomitant]
     Active Substance: CEPHALEXIN
     Indication: Product used for unknown indication
     Dosage: UNK
     Dates: start: 20150428, end: 20160104
  15. CLONAZEPAM [Concomitant]
     Active Substance: CLONAZEPAM
     Indication: Product used for unknown indication
     Dosage: UNK
     Dates: start: 20141020
  16. MODAFINIL [Concomitant]
     Active Substance: MODAFINIL
     Indication: Product used for unknown indication
     Dosage: UNK
     Dates: start: 20140512, end: 20160104
  17. TRAMADOL HCL [Concomitant]
     Active Substance: TRAMADOL HYDROCHLORIDE
     Indication: Product used for unknown indication
     Dosage: UNK
     Dates: start: 20140328
  18. VIAGRA [Concomitant]
     Active Substance: SILDENAFIL CITRATE
     Indication: Product used for unknown indication
     Dosage: UNK
     Dates: start: 20131030
  19. EFFEXOR [Concomitant]
     Active Substance: VENLAFAXINE HYDROCHLORIDE
     Indication: Product used for unknown indication
     Dosage: UNK
     Dates: start: 20130322, end: 20140514
  20. EUTHYROX [Concomitant]
     Active Substance: LEVOTHYROXINE SODIUM
     Indication: Product used for unknown indication
     Dosage: UNK
     Dates: start: 20121029, end: 20160104
  21. ABILIFY [Concomitant]
     Active Substance: ARIPIPRAZOLE
     Indication: Product used for unknown indication
     Dosage: UNK
     Dates: start: 20100101, end: 20160104
  22. REMERON [Concomitant]
     Active Substance: MIRTAZAPINE
     Indication: Product used for unknown indication
     Dosage: UNK
     Dates: start: 20010101, end: 20160104
  23. SELENIUM [Concomitant]
     Active Substance: SELENIUM
     Indication: Product used for unknown indication
     Dosage: UNK
     Dates: start: 20100101, end: 20160104
  24. CHLORMEZANONE [Concomitant]
     Active Substance: CHLORMEZANONE
     Indication: Product used for unknown indication
     Dosage: UNK
     Dates: start: 20010101, end: 20160104
  25. ACETAMINOPHEN [Concomitant]
     Active Substance: ACETAMINOPHEN
     Indication: Product used for unknown indication
  26. ARMODAFINIL [Concomitant]
     Active Substance: ARMODAFINIL
     Indication: Product used for unknown indication
     Dosage: UNK
     Dates: end: 201608
  27. ARMODAFINIL [Concomitant]
     Active Substance: ARMODAFINIL
     Dosage: UNK
     Dates: end: 201608
  28. ASPIRIN [Concomitant]
     Active Substance: ASPIRIN
     Indication: Product used for unknown indication
     Dosage: UNK
     Dates: end: 201903
  29. ASPIRIN [Concomitant]
     Active Substance: ASPIRIN
     Dosage: UNK
     Dates: end: 201903
  30. DICLOFENAC POTASSIUM [Concomitant]
     Active Substance: DICLOFENAC POTASSIUM
     Indication: Product used for unknown indication
  31. FISH OIL [Concomitant]
     Active Substance: FISH OIL
     Indication: Product used for unknown indication
     Dosage: UNK
     Dates: end: 201903
  32. FISH OIL [Concomitant]
     Active Substance: FISH OIL
     Dosage: UNK
     Dates: end: 201903
  33. FLUOXETINE HYDROCHLORIDE [Concomitant]
     Active Substance: FLUOXETINE HYDROCHLORIDE
     Indication: Product used for unknown indication
     Dosage: UNK
     Dates: end: 201608
  34. FLUOXETINE HYDROCHLORIDE [Concomitant]
     Active Substance: FLUOXETINE HYDROCHLORIDE
     Dosage: UNK
     Dates: end: 201608
  35. LEVOTHYROXINE SODIUM [Concomitant]
     Active Substance: LEVOTHYROXINE SODIUM
     Indication: Product used for unknown indication
     Dosage: UNK
     Dates: end: 20121029
  36. LEVOTHYROXINE SODIUM [Concomitant]
     Active Substance: LEVOTHYROXINE SODIUM
     Dosage: UNK
     Dates: end: 20121029
  37. LYRICA [Concomitant]
     Active Substance: PREGABALIN
     Indication: Product used for unknown indication
     Dosage: 100 MG, UNK
     Dates: end: 201903
  38. LYRICA [Concomitant]
     Active Substance: PREGABALIN
     Dosage: 50 MG, UNK
  39. LYRICA [Concomitant]
     Active Substance: PREGABALIN
     Dosage: 100 MG, UNK
     Dates: end: 201903
  40. LYRICA [Concomitant]
     Active Substance: PREGABALIN
     Dosage: 50 MG, UNK
  41. METFORMIN HYDROCHLORIDE [Concomitant]
     Active Substance: METFORMIN HYDROCHLORIDE
     Indication: Product used for unknown indication
  42. NIASPAN [Concomitant]
     Active Substance: NIACIN
     Indication: Product used for unknown indication
     Dosage: UNK
     Dates: end: 20121029
  43. PROPRANOLOL [Concomitant]
     Active Substance: PROPRANOLOL HYDROCHLORIDE
     Indication: Product used for unknown indication
  44. ZOLOFT [Concomitant]
     Active Substance: SERTRALINE HYDROCHLORIDE
     Indication: Product used for unknown indication
     Dosage: UNK
     Dates: end: 20121029

REACTIONS (6)
  - Arachnoiditis [Unknown]
  - Tethered cord syndrome [Unknown]
  - Surgery [Unknown]
  - Autoimmune thyroiditis [Unknown]
  - Diabetes mellitus [Unknown]
  - Weight decreased [Unknown]

NARRATIVE: CASE EVENT DATE: 20090401
